FAERS Safety Report 17139400 (Version 7)
Quarter: 2021Q3

REPORT INFORMATION
  Report Type: Spontaneous
  Country: US (occurrence: US)
  Receive Date: 20191211
  Receipt Date: 20210727
  Transmission Date: 20211014
  Serious: Yes (Other)
  Sender: FDA-Public Use
  Company Number: US-GILEAD-2019-0441931

PATIENT
  Sex: Male

DRUGS (1)
  1. STRIBILD [Suspect]
     Active Substance: COBICISTAT\ELVITEGRAVIR\EMTRICITABINE\TENOFOVIR DISOPROXIL FUMARATE
     Indication: PROPHYLAXIS AGAINST HIV INFECTION
     Dosage: UNK
     Route: 048
     Dates: start: 2017, end: 2017

REACTIONS (14)
  - Chronic kidney disease [Unknown]
  - Nephrolithiasis [Recovered/Resolved]
  - Tooth fracture [Unknown]
  - Emotional distress [Unknown]
  - Anxiety [Unknown]
  - Off label use [Unknown]
  - Pain [Unknown]
  - Bone density decreased [Unknown]
  - Renal impairment [Recovered/Resolved]
  - Teeth brittle [Unknown]
  - Anhedonia [Unknown]
  - Economic problem [Unknown]
  - Tooth loss [Unknown]
  - Fracture [Unknown]

NARRATIVE: CASE EVENT DATE: 2017
